FAERS Safety Report 6764840-6 (Version None)
Quarter: 2010Q2

REPORT INFORMATION
  Report Type: 
  Country: None (occurrence: None)
  Receive Date: 20100609
  Receipt Date: 20100512
  Transmission Date: 20101027
  Serious: No
  Sender: FDA-Public Use
  Company Number: 2010011657

PATIENT

DRUGS (1)
  1. CHILDREN'S ZYRTEC ALLERGY [Suspect]
     Indication: SEASONAL ALLERGY
     Dosage: 4 DOSES, ORAL
     Route: 048

REACTIONS (2)
  - PRODUCT QUALITY ISSUE [None]
  - RASH [None]
